FAERS Safety Report 9036691 (Version 1)
Quarter: 2013Q1

REPORT INFORMATION
  Report Type: Spontaneous
  Country: GB (occurrence: None)
  Receive Date: 20130114
  Receipt Date: 20130114
  Transmission Date: 20140127
  Serious: Yes (Other)
  Sender: FDA-Public Use
  Company Number: 2012AP004473

PATIENT
  Age: 71 Year
  Sex: Female

DRUGS (4)
  1. ALENDRONATE (ALENDRONATE SODIUM) [Suspect]
     Indication: OSTEOPOROSIS
     Route: 048
  2. CALCIUM CARBONATE (CALCIUM CARBONATE) [Concomitant]
  3. OMEPRAZOLE (OMEPRAZOLE) [Concomitant]
  4. STATIN /00084401/ (TIABENDAZOLE) [Concomitant]

REACTIONS (3)
  - Osteonecrosis of jaw [None]
  - Bone loss [None]
  - Oroantral fistula [None]
